FAERS Safety Report 5577810-0 (Version None)
Quarter: 2007Q4

REPORT INFORMATION
  Report Type: 
  Country: None (occurrence: None)
  Receive Date: 20071231
  Receipt Date: 20071221
  Transmission Date: 20080405
  Serious: Yes (Other)
  Sender: FDA-Public Use
  Company Number: PHBS2007JP20923

PATIENT
  Age: 37 Year
  Sex: Female

DRUGS (10)
  1. TEGRETOL [Suspect]
     Dosage: 300 MG/DAY
     Route: 048
  2. TEGRETOL [Suspect]
     Dosage: 600 MG/DAY
     Route: 048
  3. REGITINE [Suspect]
     Route: 042
  4. MEXITIL [Concomitant]
     Dosage: 300 MG/DAY
  5. KETAMINE HYDROCHLORIDE [Concomitant]
     Dosage: 90 MG/DAY
  6. KETAMINE HYDROCHLORIDE [Concomitant]
     Dosage: 150 MG/DAY
  7. BACLOFEN [Concomitant]
     Dosage: 30 MG/DAY
     Route: 048
  8. PAXIL [Concomitant]
     Dosage: 20 MG/DAY
  9. PAXIL [Concomitant]
     Dosage: 10 MG/DAY
  10. AMITRIPTYLINE HYDROCHLORIDE [Concomitant]
     Dosage: 50 MG/DAY

REACTIONS (3)
  - CONVERSION DISORDER [None]
  - MONOPLEGIA [None]
  - PAIN IN EXTREMITY [None]
